FAERS Safety Report 12876066 (Version 1)
Quarter: 2016Q4

REPORT INFORMATION
  Report Type: Spontaneous
  Country: US (occurrence: US)
  Receive Date: 20161024
  Receipt Date: 20161024
  Transmission Date: 20170207
  Serious: No
  Sender: FDA-Public Use
  Company Number: US-JAZZ-2016-US-015411

PATIENT
  Sex: Female

DRUGS (40)
  1. MULTIVITAMIN WITH MINERALS [Concomitant]
     Active Substance: MINERALS\VITAMINS
  2. NUVIGIL [Concomitant]
     Active Substance: ARMODAFINIL
  3. LAMICTAL [Concomitant]
     Active Substance: LAMOTRIGINE
  4. PROVIGIL [Concomitant]
     Active Substance: MODAFINIL
  5. CYMBALTA [Concomitant]
     Active Substance: DULOXETINE HYDROCHLORIDE
  6. CELEXA [Concomitant]
     Active Substance: CITALOPRAM HYDROBROMIDE
  7. SIMVASTATIN. [Concomitant]
     Active Substance: SIMVASTATIN
  8. RANITIDINE. [Concomitant]
     Active Substance: RANITIDINE
  9. VITAMIN D3 [Concomitant]
     Active Substance: CHOLECALCIFEROL
  10. ADVAIR HFA [Concomitant]
     Active Substance: FLUTICASONE PROPIONATE\SALMETEROL XINAFOATE
  11. MS CONTIN [Concomitant]
     Active Substance: MORPHINE SULFATE
  12. PAXIL [Concomitant]
     Active Substance: PAROXETINE HYDROCHLORIDE
  13. XYREM [Suspect]
     Active Substance: SODIUM OXYBATE
     Dosage: DOSE ADJUSTMENTS
     Route: 048
     Dates: start: 201207, end: 201207
  14. MACROBID [Concomitant]
     Active Substance: NITROFURANTOIN\NITROFURANTOIN MONOHYDRATE
  15. ASPIRIN. [Concomitant]
     Active Substance: ASPIRIN
  16. IRON [Concomitant]
     Active Substance: IRON
  17. SOMA [Concomitant]
     Active Substance: CARISOPRODOL
  18. COLACE [Concomitant]
     Active Substance: DOCUSATE SODIUM
  19. XYREM [Suspect]
     Active Substance: SODIUM OXYBATE
     Dosage: 4.5 G, BID
     Route: 048
     Dates: start: 201207, end: 2013
  20. BRINTELLIX [Concomitant]
     Active Substance: VORTIOXETINE HYDROBROMIDE
  21. SEROQUEL [Concomitant]
     Active Substance: QUETIAPINE FUMARATE
  22. SYNTHROID [Concomitant]
     Active Substance: LEVOTHYROXINE SODIUM
  23. BACLOFEN. [Concomitant]
     Active Substance: BACLOFEN
  24. ALBUTEROL SULFATE. [Concomitant]
     Active Substance: ALBUTEROL SULFATE
  25. BENTYL [Concomitant]
     Active Substance: DICYCLOMINE HYDROCHLORIDE
  26. NEXIUM [Concomitant]
     Active Substance: ESOMEPRAZOLE MAGNESIUM
  27. DILAUDID [Concomitant]
     Active Substance: HYDROMORPHONE HYDROCHLORIDE
  28. LATUDA [Concomitant]
     Active Substance: LURASIDONE HYDROCHLORIDE
  29. ABILIFY [Concomitant]
     Active Substance: ARIPIPRAZOLE
  30. KLONOPIN [Concomitant]
     Active Substance: CLONAZEPAM
  31. PLAVIX [Concomitant]
     Active Substance: CLOPIDOGREL BISULFATE
  32. FIBERCON [Concomitant]
     Active Substance: CALCIUM POLYCARBOPHIL
  33. DEXAMETHASONE. [Concomitant]
     Active Substance: DEXAMETHASONE
  34. FLONASE [Concomitant]
     Active Substance: FLUTICASONE PROPIONATE
  35. XYREM [Suspect]
     Active Substance: SODIUM OXYBATE
     Indication: NARCOLEPSY
     Dosage: 2.25 G, BID
     Route: 048
     Dates: start: 201207, end: 201207
  36. XYREM [Suspect]
     Active Substance: SODIUM OXYBATE
     Dosage: 4.5 G, BID
     Route: 048
     Dates: start: 201408
  37. GLUCOSAMINE/CHONDROITIN [Concomitant]
  38. CALCIUM [Concomitant]
     Active Substance: CALCIUM
  39. FLOMAX [Concomitant]
     Active Substance: TAMSULOSIN HYDROCHLORIDE
  40. EXALGO [Concomitant]
     Active Substance: HYDROMORPHONE HYDROCHLORIDE

REACTIONS (4)
  - Blood iron abnormal [Unknown]
  - Somnambulism [Not Recovered/Not Resolved]
  - Fall [Unknown]
  - Memory impairment [Unknown]
